FAERS Safety Report 8418411-6 (Version None)
Quarter: 2012Q2

REPORT INFORMATION
  Report Type: 
  Country: None (occurrence: None)
  Receive Date: 20120323
  Receipt Date: 20110216
  Transmission Date: 20120825
  Serious: Yes (Other)
  Sender: FDA-Public Use
  Company Number: 163-21880-11022139

PATIENT
  Age: 75 Year
  Sex: Male

DRUGS (16)
  1. CLARITIN [Concomitant]
  2. FLONASE [Concomitant]
  3. HUMALOG [Concomitant]
  4. KLOR-CON [Concomitant]
  5. ASCORBIC ACID [Concomitant]
  6. TELAVANCIN (TELAVANCIN) [Concomitant]
  7. RANITIDINE HYDROCHLORIDE [Concomitant]
  8. IPRATROPIUM BROMIDE [Concomitant]
  9. BUMEX [Concomitant]
  10. COUMADIN [Concomitant]
  11. VITAMIN D [Concomitant]
  12. JANUVIA [Concomitant]
  13. CARDIZEM [Concomitant]
  14. FERROUS SULFATE TAB [Concomitant]
  15. ZINC (ZINC) [Concomitant]
  16. REVLIMID [Suspect]
     Indication: CHRONIC MYELOMONOCYTIC LEUKAEMIA
     Dosage: 5 MG, DAILY X 21 DAYS W/7 DAYS OFF, PO
     Route: 048
     Dates: start: 20081201

REACTIONS (2)
  - HAEMATOCRIT DECREASED [None]
  - HAEMOGLOBIN INCREASED [None]
